FAERS Safety Report 18188915 (Version 1)
Quarter: 2020Q3

REPORT INFORMATION
  Report Type: Spontaneous
  Country: US (occurrence: US)
  Receive Date: 20200824
  Receipt Date: 20200824
  Transmission Date: 20201103
  Serious: No
  Sender: FDA-Public Use
  Company Number: US-ELI_LILLY_AND_COMPANY-US202008008297

PATIENT
  Age: 55 Year
  Sex: Male

DRUGS (2)
  1. GLUCAGON. [Suspect]
     Active Substance: GLUCAGON
     Indication: BLOOD GLUCOSE DECREASED
     Dosage: 1 DOSAGE FORM, UNKNOWN
     Route: 065
  2. NOVOLIN NOS [Concomitant]
     Active Substance: INSULIN HUMAN
     Indication: TYPE 2 DIABETES MELLITUS
     Dosage: 1 DOSAGE FORM, UNKNOWN
     Route: 065

REACTIONS (3)
  - Expired device used [Recovered/Resolved]
  - Headache [Unknown]
  - Amnesia [Unknown]

NARRATIVE: CASE EVENT DATE: 20200815
